FAERS Safety Report 8383804-2 (Version None)
Quarter: 2012Q2

REPORT INFORMATION
  Report Type: 
  Country: None (occurrence: None)
  Receive Date: 20120524
  Receipt Date: 20120515
  Transmission Date: 20120825
  Serious: Yes (Other)
  Sender: FDA-Public Use
  Company Number: US-ASTRAZENECA-2012SE22851

PATIENT
  Age: 44 Year
  Sex: Male
  Weight: 88.9 kg

DRUGS (3)
  1. NEXIUM [Suspect]
     Indication: BARRETT'S OESOPHAGUS
     Route: 048
     Dates: start: 20110503
  2. NEURONTIN [Concomitant]
     Indication: LUMBAR RADICULOPATHY
     Route: 048
     Dates: start: 20090903
  3. PROTONIX [Concomitant]

REACTIONS (1)
  - BACK INJURY [None]
